FAERS Safety Report 15222954 (Version 2)
Quarter: 2022Q1

REPORT INFORMATION
  Report Type: Report from Study
  Country: CA (occurrence: US)
  Receive Date: 20180731
  Receipt Date: 20220303
  Transmission Date: 20220423
  Serious: Yes (Hospitalization)
  Sender: FDA-Public Use
  Company Number: CA-JNJFOC-20180731999

PATIENT
  Age: 47 Year
  Sex: Male

DRUGS (2)
  1. STELARA [Suspect]
     Active Substance: USTEKINUMAB
     Indication: Crohn^s disease
     Route: 058
     Dates: start: 20170328
  2. STELARA [Suspect]
     Active Substance: USTEKINUMAB
     Route: 058
     Dates: start: 201803

REACTIONS (5)
  - Intestinal stenosis [Unknown]
  - Obstruction [Recovered/Resolved]
  - Stoma site pain [Unknown]
  - Gastroenteritis [Recovered/Resolved]
  - Crohn^s disease [Unknown]

NARRATIVE: CASE EVENT DATE: 20180101
